FAERS Safety Report 14925485 (Version 2)
Quarter: 2018Q2

REPORT INFORMATION
  Report Type: Spontaneous
  Country: FI (occurrence: FI)
  Receive Date: 20180522
  Receipt Date: 20180531
  Transmission Date: 20180711
  Serious: Yes (Other)
  Sender: FDA-Public Use
  Company Number: FI-JNJFOC-20180526349

PATIENT
  Age: 64 Year
  Sex: Female

DRUGS (5)
  1. RISPERIDONE. [Suspect]
     Active Substance: RISPERIDONE
     Indication: PRODUCT USED FOR UNKNOWN INDICATION
     Route: 065
  2. LAXOBERON [Interacting]
     Active Substance: SODIUM PICOSULFATE
     Indication: CONSTIPATION
     Dosage: IN THE EVENING
     Route: 048
     Dates: start: 2018, end: 201805
  3. PEGORION [Concomitant]
     Active Substance: POLYETHYLENE GLYCOL 4000
     Route: 065
     Dates: start: 201805
  4. MEMANTINE. [Interacting]
     Active Substance: MEMANTINE
     Indication: PRODUCT USED FOR UNKNOWN INDICATION
     Route: 065
  5. MINISUN [Interacting]
     Active Substance: CHOLECALCIFEROL
     Indication: PRODUCT USED FOR UNKNOWN INDICATION
     Route: 065

REACTIONS (10)
  - Somnolence [Unknown]
  - Anorectal disorder [Unknown]
  - Malaise [Unknown]
  - Diarrhoea [Unknown]
  - Gastrointestinal disorder [Unknown]
  - Drug interaction [Unknown]
  - Fatigue [Unknown]
  - Unevaluable event [Unknown]
  - Dementia [Unknown]
  - Gastric disorder [Recovered/Resolved]
